FAERS Safety Report 7804229-1 (Version None)
Quarter: 2011Q4

REPORT INFORMATION
  Report Type: 
  Country: None (occurrence: None)
  Receive Date: 20111010
  Receipt Date: 20110926
  Transmission Date: 20120403
  Serious: Yes (Other)
  Sender: FDA-Public Use
  Company Number: PHHY2011IE80756

PATIENT
  Sex: Female

DRUGS (4)
  1. MYCOPHENOLATE MOFETIL (CELLCEPT) [Concomitant]
     Indication: LIVER TRANSPLANT
     Dosage: 500 MG, UNK
     Route: 048
     Dates: start: 20090401
  2. RASILEZ [Suspect]
     Indication: HYPERTENSION
     Dosage: 150 MG, UNK
     Route: 048
     Dates: start: 20110719, end: 20110721
  3. PROGRAF [Concomitant]
     Indication: LIVER TRANSPLANT
     Dosage: 0.5 MG, UNK
     Route: 048
     Dates: start: 20090401
  4. ISTIN [Concomitant]
     Indication: HYPERTENSION
     Dosage: 10 MG, UNK
     Route: 048
     Dates: start: 20091201

REACTIONS (3)
  - DYSPNOEA [None]
  - MALAISE [None]
  - DIZZINESS [None]
